FAERS Safety Report 8861903 (Version 6)
Quarter: 2013Q2

REPORT INFORMATION
  Report Type: Spontaneous
  Country: US (occurrence: US)
  Receive Date: 20121025
  Receipt Date: 20130422
  Transmission Date: 20140414
  Serious: Yes (Hospitalization, Disabling, Other)
  Sender: FDA-Public Use
  Company Number: US-009507513-1210USA005985

PATIENT
  Sex: Female
  Weight: 54.42 kg

DRUGS (4)
  1. FOSAMAX [Suspect]
     Indication: OSTEOPOROSIS
     Dosage: 10 MG, UNK
     Route: 048
     Dates: start: 20000713, end: 200108
  2. FOSAMAX [Suspect]
     Indication: PROPHYLAXIS
     Dosage: 70 MG UNK
     Route: 048
     Dates: start: 20010810, end: 200802
  3. ALENDRONATE SODIUM [Suspect]
     Indication: PROPHYLAXIS
     Dosage: 70 MG, UNK
     Route: 048
     Dates: start: 20080213, end: 20100416
  4. CALCIUM (UNSPECIFIED) [Concomitant]
     Dosage: 1200 MG,QD
     Route: 048
     Dates: start: 1995

REACTIONS (27)
  - Internal fixation of fracture [Unknown]
  - Low turnover osteopathy [Not Recovered/Not Resolved]
  - Nasal septal operation [Unknown]
  - Femur fracture [Not Recovered/Not Resolved]
  - Asthma [Unknown]
  - Inappropriate schedule of drug administration [Unknown]
  - Growth retardation [Unknown]
  - Fall [Unknown]
  - Wrist fracture [Unknown]
  - Osteopenia [Unknown]
  - Lung hyperinflation [Unknown]
  - Pulmonary mass [Unknown]
  - Cardiomegaly [Unknown]
  - Hyponatraemia [Unknown]
  - Blood cholesterol increased [Unknown]
  - Blood creatinine increased [Unknown]
  - Lagophthalmos [Unknown]
  - Nasopharyngitis [Unknown]
  - Chronic obstructive pulmonary disease [Not Recovered/Not Resolved]
  - Nicotine dependence [Unknown]
  - Foot fracture [Unknown]
  - Glucose tolerance impaired [Unknown]
  - Vaginitis bacterial [Unknown]
  - Skin lesion [Unknown]
  - Acute sinusitis [Unknown]
  - Pain in extremity [Unknown]
  - Headache [Unknown]
